FAERS Safety Report 14928302 (Version 2)
Quarter: 2018Q4

REPORT INFORMATION
  Report Type: Spontaneous
  Country: PT (occurrence: PT)
  Receive Date: 20180523
  Receipt Date: 20181224
  Transmission Date: 20190204
  Serious: Yes (Hospitalization, Other)
  Sender: FDA-Public Use
  Company Number: PT-AUROBINDO-AUR-APL-2018-026982

PATIENT
  Age: 66 Year
  Sex: Female

DRUGS (9)
  1. CYAMEMAZINE [Concomitant]
     Active Substance: CYAMEMAZINE
     Indication: DEPRESSION
     Dosage: 100 MILLIGRAM, DAILY
     Route: 065
  2. ROSUVASTATIN. [Concomitant]
     Active Substance: ROSUVASTATIN
     Indication: DYSLIPIDAEMIA
     Dosage: 10 MILLIGRAM
     Route: 065
  3. CEFTRIAXONE. [Concomitant]
     Active Substance: CEFTRIAXONE
     Indication: ACUTE KIDNEY INJURY
     Dosage: UNK
     Route: 065
  4. LERCANIDIPINE [Concomitant]
     Active Substance: LERCANIDIPINE
     Indication: HYPERTENSION
     Dosage: 20 MILLIGRAM
     Route: 065
  5. VENLAFAXINE [Suspect]
     Active Substance: VENLAFAXINE HYDROCHLORIDE
     Indication: DEPRESSION
     Dosage: 150 MILLIGRAM, DAILY
     Route: 048
  6. CARBAMAZEPINE. [Concomitant]
     Active Substance: CARBAMAZEPINE
     Indication: DEPRESSION
     Dosage: 400 MILLIGRAM, DAILY
     Route: 065
  7. NITROFURANTOIN. [Concomitant]
     Active Substance: NITROFURANTOIN
     Indication: CYSTITIS
     Dosage: UNK
     Route: 065
  8. CEFTRIAXONE. [Concomitant]
     Active Substance: CEFTRIAXONE
     Indication: PYELONEPHRITIS
  9. LORAZEPAM. [Concomitant]
     Active Substance: LORAZEPAM
     Indication: DEPRESSION
     Dosage: 5 MILLIGRAM, DAILY
     Route: 065

REACTIONS (14)
  - Phaeochromocytoma [Recovered/Resolved]
  - Back pain [Recovered/Resolved]
  - Acute kidney injury [Recovered/Resolved]
  - Leukocyturia [Unknown]
  - Overdose [Recovered/Resolved]
  - Pseudophaeochromocytoma [Recovered/Resolved]
  - Hypocalcaemia [Unknown]
  - Acute pulmonary oedema [Unknown]
  - Ventricular tachycardia [Recovering/Resolving]
  - Pyelonephritis [Unknown]
  - Pyrexia [Recovered/Resolved]
  - Hypertension [Recovering/Resolving]
  - Fatigue [Recovered/Resolved]
  - Blood creatinine increased [Unknown]
